FAERS Safety Report 9513685 (Version 1)
Quarter: 2013Q1

REPORT INFORMATION
  Report Type: Spontaneous
  Country: US (occurrence: None)
  Receive Date: 20130305
  Receipt Date: 20130305
  Transmission Date: 20140127
  Serious: Yes (Other)
  Sender: FDA-Public Use
  Company Number: 163-21880-12092011

PATIENT
  Age: 46 Year
  Sex: Male
  Weight: 99.79 kg

DRUGS (12)
  1. REVLIMID (LENALIDOMIDE) (25 MILLIGRAM, UNKNOWN) [Suspect]
     Indication: LYMPHOMA
     Dosage: 25 MG, 21 IN 21 D, UNK
     Dates: start: 20120721
  2. ACETAMINOPHEN (PARACETAMOL) (UNKNOWN) (PARACETAMOL) [Concomitant]
  3. ASPIRIN (ACETYLSALICYLIC ACID) (UNKNOWN) (ACETYLSALICYLIC ACID) [Concomitant]
  4. DHEA (PRASTERONE) (TABLETS) [Concomitant]
  5. DIFLUCAN (FLUCONAZOLE) (TABLETS) [Concomitant]
  6. GLIPIZIDE (GLIPIZIDE) (UNKNOWN) [Concomitant]
  7. IBUPROFEN (IBUPROFEN) (CAPSULES) [Concomitant]
  8. PREDNISONE (PREDNISONE) (TABLETS) [Concomitant]
  9. VALTREX (VALACICLOVIR HYDROCHLORIDE) (UNKNOWN) [Concomitant]
  10. VITAMIN D3 (COLECALCIFEROL) (UNKNOWN) [Concomitant]
  11. APIDRA (INSULIN GLULISINE) (UNKNOWN) [Concomitant]
  12. LANTUS (INSULIN GLARGINE) (UNKNOWN) [Concomitant]

REACTIONS (10)
  - Pain [None]
  - Neuropathy peripheral [None]
  - Myalgia [None]
  - Muscle spasms [None]
  - Neutropenia [None]
  - Thrombocytopenia [None]
  - Visual acuity reduced [None]
  - Abdominal pain upper [None]
  - Erectile dysfunction [None]
  - Abdominal discomfort [None]
